FAERS Safety Report 12774110 (Version 1)
Quarter: 2016Q3

REPORT INFORMATION
  Report Type: Other
  Country: CN (occurrence: CN)
  Receive Date: 20160923
  Receipt Date: 20160923
  Transmission Date: 20161109
  Serious: Yes (Hospitalization)
  Sender: FDA-Public Use
  Company Number: CN-LUPIN PHARMACEUTICALS INC.-2016-04251

PATIENT
  Age: 56 Year
  Sex: Male

DRUGS (8)
  1. LAMIVUDINE. [Suspect]
     Active Substance: LAMIVUDINE
     Indication: HEPATITIS B
     Route: 065
  2. ETOPOSIDE+CARBOPLATIN [Concomitant]
     Indication: SMALL CELL LUNG CANCER
     Dosage: 3 CYCLES
     Route: 065
  3. CISPLATIN. [Concomitant]
     Active Substance: CISPLATIN
     Indication: SMALL CELL LUNG CANCER
     Dosage: 1 CYCLE
     Route: 065
  4. ETOPOSIDE. [Concomitant]
     Active Substance: ETOPOSIDE
     Indication: SMALL CELL LUNG CANCER
     Dosage: 2 CYCLE
     Route: 065
  5. CISPLATIN. [Concomitant]
     Active Substance: CISPLATIN
     Dosage: 2 CYCLE
     Route: 065
  6. GLUTHION [Concomitant]
     Indication: HEPATITIS B
     Route: 065
  7. TRANSMETIL [Concomitant]
     Active Substance: ADEMETIONINE
     Indication: HEPATITIS B
     Route: 065
  8. ESSENTIALE [Concomitant]
     Indication: HEPATITIS B
     Route: 065

REACTIONS (1)
  - Drug resistance [Unknown]
